FAERS Safety Report 6834397-X (Version None)
Quarter: 2010Q3

REPORT INFORMATION
  Report Type: 
  Country: None (occurrence: None)
  Receive Date: 20100712
  Receipt Date: 20070625
  Transmission Date: 20110219
  Serious: No
  Sender: FDA-Public Use
  Company Number: US-PFIZER INC-2007029130

PATIENT
  Sex: Male
  Weight: 65.32 kg

DRUGS (6)
  1. CHANTIX [Suspect]
     Indication: SMOKING CESSATION THERAPY
  2. LAMICTAL [Concomitant]
  3. PROCARDIA [Concomitant]
  4. CHLORAL HYDRATE [Concomitant]
  5. DEMEROL [Concomitant]
  6. SOMA [Concomitant]

REACTIONS (1)
  - HEART RATE INCREASED [None]
